FAERS Safety Report 8951668 (Version 2)
Quarter: 2013Q3

REPORT INFORMATION
  Report Type: Spontaneous
  Country: US (occurrence: US)
  Receive Date: 20121204
  Receipt Date: 20130813
  Transmission Date: 20140515
  Serious: Yes (Other)
  Sender: FDA-Public Use
  Company Number: CHPA2012US024149

PATIENT
  Age: 75 Year
  Sex: Female

DRUGS (1)
  1. MAALOX ADV MAXIMUM STRENGTH ANTACID/ANTIGAS [Suspect]
     Indication: GASTRIC ULCER
     Dosage: A LITTLE BIT, OFF AND ON
     Route: 048
     Dates: end: 2012

REACTIONS (3)
  - Hypertension [Recovering/Resolving]
  - Off label use [Recovered/Resolved]
  - Therapeutic response unexpected [Unknown]
